FAERS Safety Report 19117139 (Version 1)
Quarter: 2021Q2

REPORT INFORMATION
  Report Type: Spontaneous
  Country: US (occurrence: US)
  Receive Date: 20210409
  Receipt Date: 20210409
  Transmission Date: 20210717
  Serious: Yes (Other)
  Sender: FDA-Public Use
  Company Number: US-THE RITEDOSE CORPORATION-2021RIT000096

PATIENT
  Age: 59 Year
  Sex: Male
  Weight: 71.2 kg

DRUGS (4)
  1. ATORVASTATIN CALCIUM. [Suspect]
     Active Substance: ATORVASTATIN CALCIUM
     Indication: HYPERCHOLESTEROLAEMIA
     Dosage: 40 MG, QD, MOST RECENT DOSE ON 18?MAR?2021
     Route: 048
     Dates: start: 201901
  2. TOZINAMERAN. [Suspect]
     Active Substance: TOZINAMERAN
     Indication: COVID-19 IMMUNISATION
     Dosage: UNK
     Route: 030
     Dates: start: 20210224, end: 20210319
  3. LEVOTHYROXINE SODIUM. [Suspect]
     Active Substance: LEVOTHYROXINE SODIUM
     Indication: HYPOTHYROIDISM
     Dosage: 300 ?G, QD, MOST RECENT DOSE WAS ON 19?MAR?2021
     Route: 048
     Dates: start: 2005
  4. ALBUTEROL SULFATE INHALATION SOLUTION [Suspect]
     Active Substance: ALBUTEROL SULFATE
     Indication: CHRONIC OBSTRUCTIVE PULMONARY DISEASE
     Dosage: UNK, 2 PUFF, PRN
     Route: 055
     Dates: start: 2001

REACTIONS (8)
  - Hypothyroidism [Unknown]
  - Cardiac disorder [Unknown]
  - Off label use [Unknown]
  - Hypercholesterolaemia [Unknown]
  - Pain in extremity [Unknown]
  - Neck pain [Unknown]
  - Prostatomegaly [Unknown]
  - Spinal fracture [Recovered/Resolved]

NARRATIVE: CASE EVENT DATE: 2005
